FAERS Safety Report 7075501-0 (Version None)
Quarter: 2010Q4

REPORT INFORMATION
  Report Type: 
  Country: None (occurrence: None)
  Receive Date: 20101030
  Receipt Date: 20101005
  Transmission Date: 20110411
  Serious: No
  Sender: FDA-Public Use
  Company Number: US-WYE-H18039110

PATIENT
  Sex: Male
  Weight: 72.64 kg

DRUGS (5)
  1. PRISTIQ [Suspect]
     Indication: DEPRESSION
     Dates: start: 20100901
  2. PRISTIQ [Suspect]
     Indication: NEURALGIA
  3. NORTRIPTYLINE [Concomitant]
  4. SALBUTAMOL [Concomitant]
  5. ZYRTEC [Concomitant]

REACTIONS (2)
  - HOT FLUSH [None]
  - SENSORY DISTURBANCE [None]
